FAERS Safety Report 24033129 (Version 9)
Quarter: 2025Q3

REPORT INFORMATION
  Report Type: Spontaneous
  Country: US (occurrence: US)
  Receive Date: 20240701
  Receipt Date: 20250901
  Transmission Date: 20251021
  Serious: Yes (Hospitalization, Other)
  Sender: BRISTOL-MYERS SQUIBB COMPANY
  Company Number: US-BRISTOL-MYERS SQUIBB COMPANY-2024-103455

PATIENT
  Age: 72 Year
  Sex: Female

DRUGS (3)
  1. REVLIMID [Suspect]
     Active Substance: LENALIDOMIDE
     Indication: Plasma cell myeloma
     Route: 048
  2. REVLIMID [Suspect]
     Active Substance: LENALIDOMIDE
     Dosage: QD
     Route: 048
  3. REVLIMID [Suspect]
     Active Substance: LENALIDOMIDE
     Dosage: TAKE 1 CAPSULE BY MOUTH DAILY FOR 28 DAYS
     Route: 048

REACTIONS (9)
  - Rash pruritic [Recovering/Resolving]
  - Palpitations [Unknown]
  - Pulmonary thrombosis [Unknown]
  - Arthralgia [Unknown]
  - Neck pain [Unknown]
  - Heart rate increased [Unknown]
  - Product dose omission issue [Unknown]
  - Pain [Unknown]
  - Skin discolouration [Unknown]
